FAERS Safety Report 18196028 (Version 2)
Quarter: 2020Q4

REPORT INFORMATION
  Report Type: Spontaneous
  Country: JP (occurrence: JP)
  Receive Date: 20200825
  Receipt Date: 20201002
  Transmission Date: 20210113
  Serious: No
  Sender: FDA-Public Use
  Company Number: JP-ABBVIE-20K-087-3536874-00

PATIENT
  Age: 79 Year
  Sex: Male

DRUGS (4)
  1. REBAMIPIDE [Concomitant]
     Active Substance: REBAMIPIDE
     Indication: BEHCET^S SYNDROME
     Route: 048
  2. HUMIRA [Suspect]
     Active Substance: ADALIMUMAB
     Indication: BEHCET^S SYNDROME
     Route: 058
     Dates: start: 20200302, end: 20200413
  3. CLOSTRIDIUM BUTYRICUM [Concomitant]
     Active Substance: CLOSTRIDIUM BUTYRICUM SPORES STRAIN M-55
     Indication: PRODUCT USED FOR UNKNOWN INDICATION
     Route: 048
  4. COLCHICINE. [Concomitant]
     Active Substance: COLCHICINE
     Indication: BEHCET^S SYNDROME
     Route: 048

REACTIONS (1)
  - Carcinoembryonic antigen increased [Recovering/Resolving]
